FAERS Safety Report 6734640-1 (Version None)
Quarter: 2010Q2

REPORT INFORMATION
  Report Type: 
  Country: None (occurrence: None)
  Receive Date: 20100519
  Receipt Date: 20100517
  Transmission Date: 20101027
  Serious: Yes (Hospitalization)
  Sender: FDA-Public Use
  Company Number: SP02922

PATIENT
  Age: 70 Year
  Sex: Female
  Weight: 63.05 kg

DRUGS (8)
  1. MOVIPREP [Suspect]
     Indication: BOWEL PREPARATION
     Dosage: 1 LIT, ORAL
     Route: 048
     Dates: start: 20100425, end: 20100425
  2. TENORMIN [Concomitant]
  3. MICARDIS [Concomitant]
  4. SYNTHROID [Concomitant]
  5. CHLORAZEPAM [Concomitant]
  6. NORTRIPTYLINE HCL [Concomitant]
  7. PEPCID [Concomitant]
  8. ASPIRIN [Concomitant]

REACTIONS (3)
  - CONVULSION [None]
  - DEHYDRATION [None]
  - LOSS OF CONSCIOUSNESS [None]
